FAERS Safety Report 4719431-5 (Version None)
Quarter: 2005Q3

REPORT INFORMATION
  Report Type: 
  Country: None (occurrence: None)
  Receive Date: 20050721
  Receipt Date: 20050711
  Transmission Date: 20060218
  Serious: Yes (Other)
  Sender: FDA-Public Use
  Company Number: PHBS2005GR09903

PATIENT
  Age: 54 Year
  Sex: Female

DRUGS (2)
  1. ZOMETA [Suspect]
     Indication: METASTASES TO BONE
     Dosage: UNK, QMO
  2. AREDIA [Suspect]
     Indication: METASTASES TO BONE

REACTIONS (5)
  - ASEPTIC NECROSIS BONE [None]
  - DENTURE WEARER [None]
  - IMPAIRED HEALING [None]
  - TOOTH DISORDER [None]
  - TOOTH EXTRACTION [None]
